FAERS Safety Report 11139756 (Version 1)
Quarter: 2015Q2

REPORT INFORMATION
  Report Type: Spontaneous
  Country: US (occurrence: None)
  Receive Date: 20150526
  Receipt Date: 20150526
  Transmission Date: 20150821
  Serious: Yes (Other)
  Sender: FDA-Public Use
  Company Number: None

PATIENT
  Age: 20 Year
  Sex: Female
  Weight: 57.15 kg

DRUGS (4)
  1. FIBER SUPPLEMENTS [Concomitant]
  2. DOXYCYCLINE MONO 100 MG PAR PHARMACEUTICAL [Suspect]
     Active Substance: DOXYCYCLINE
     Indication: SKIN DISORDER
     Dosage: 1 TWICE DAILY TAKEN BY MOUTH
     Route: 048
     Dates: start: 20150512, end: 20150517
  3. DOXYCYCLINE MONO 100 MG PAR PHARMACEUTICAL [Suspect]
     Active Substance: DOXYCYCLINE
     Indication: LYMPHADENOPATHY
     Dosage: 1 TWICE DAILY TAKEN BY MOUTH
     Route: 048
     Dates: start: 20150512, end: 20150517
  4. GUMMY SUPPLEMENTS [Concomitant]

REACTIONS (4)
  - Diarrhoea [None]
  - Abnormal behaviour [None]
  - Affective disorder [None]
  - Crying [None]

NARRATIVE: CASE EVENT DATE: 20150517
